FAERS Safety Report 5566480-3 (Version None)
Quarter: 2007Q4

REPORT INFORMATION
  Report Type: 
  Country: None (occurrence: None)
  Receive Date: 20071219
  Receipt Date: 20071212
  Transmission Date: 20080405
  Serious: Yes (Hospitalization)
  Sender: FDA-Public Use
  Company Number: JP-AVENTIS-200715737EU

PATIENT
  Age: 58 Year
  Sex: Female

DRUGS (7)
  1. TAKEPRON [Suspect]
     Route: 048
     Dates: start: 20071110, end: 20071111
  2. TAKEPRON [Suspect]
     Route: 048
     Dates: start: 20071112, end: 20071117
  3. TAKEPRON [Suspect]
     Indication: GASTRIC ULCER
     Route: 048
     Dates: start: 20071110, end: 20071111
  4. TAKEPRON [Suspect]
     Route: 048
     Dates: start: 20071112, end: 20071117
  5. FLAGYL [Suspect]
     Route: 048
     Dates: start: 20071112, end: 20071117
  6. AMOXICILLIN TRIHYDRATE [Suspect]
     Route: 048
     Dates: start: 20071112, end: 20071117
  7. MICARDIS [Concomitant]
     Route: 048
     Dates: start: 20061208

REACTIONS (1)
  - COLITIS ISCHAEMIC [None]
